FAERS Safety Report 21596968 (Version 2)
Quarter: 2022Q4

REPORT INFORMATION
  Report Type: Spontaneous
  Country: US (occurrence: US)
  Receive Date: 20221115
  Receipt Date: 20221115
  Transmission Date: 20230113
  Serious: No
  Sender: FDA-Public Use
  Company Number: US-AMNEAL PHARMACEUTICALS-2021-AMRX-04655

PATIENT
  Age: 14 Year
  Sex: Female

DRUGS (3)
  1. ISOTRETINOIN [Suspect]
     Active Substance: ISOTRETINOIN
     Indication: Acne
     Dosage: 10 MILLIGRAM, DAILY
     Route: 048
     Dates: start: 20210514, end: 20211011
  2. CETIRIZINE [Concomitant]
     Active Substance: CETIRIZINE HYDROCHLORIDE
     Indication: Multiple allergies
     Dosage: UNK
     Route: 065
  3. FLONASE ALLERGY RELIEF [Concomitant]
     Active Substance: FLUTICASONE PROPIONATE
     Indication: Multiple allergies
     Dosage: UNK
     Route: 065

REACTIONS (2)
  - Stress [Unknown]
  - Depressed mood [Unknown]

NARRATIVE: CASE EVENT DATE: 20211001
